FAERS Safety Report 25959506 (Version 2)
Quarter: 2025Q4

REPORT INFORMATION
  Report Type: Spontaneous
  Country: US (occurrence: US)
  Receive Date: 20251026
  Receipt Date: 20251114
  Transmission Date: 20260119
  Serious: No
  Sender: ALEXION PHARMACEUTICALS
  Company Number: US-AstraZeneca-CH-00977350A

PATIENT
  Sex: Female

DRUGS (2)
  1. FASENRA [Suspect]
     Active Substance: BENRALIZUMAB
     Indication: Asthma
     Dosage: 30 MILLIGRAM, Q4W
  2. FASENRA [Suspect]
     Active Substance: BENRALIZUMAB

REACTIONS (2)
  - Eosinophil count increased [Unknown]
  - Drug ineffective [Unknown]
